FAERS Safety Report 4447777-7 (Version None)
Quarter: 2004Q3

REPORT INFORMATION
  Report Type: 
  Country: None (occurrence: None)
  Receive Date: 20040913
  Receipt Date: 20040824
  Transmission Date: 20050211
  Serious: Yes (Other)
  Sender: FDA-Public Use
  Company Number: 200416395US

PATIENT
  Sex: Female

DRUGS (3)
  1. LOVENOX [Suspect]
     Dosage: DOSE: UNK
  2. COUMADIN [Concomitant]
     Indication: PULMONARY EMBOLISM
     Dosage: DOSE: UNK
  3. COUMADIN [Concomitant]
     Indication: THROMBOSIS
     Dosage: DOSE: UNK

REACTIONS (5)
  - ABORTION SPONTANEOUS [None]
  - DRUG EXPOSURE DURING PREGNANCY [None]
  - PREGNANCY [None]
  - PULMONARY EMBOLISM [None]
  - PULMONARY THROMBOSIS [None]
